FAERS Safety Report 25004672 (Version 1)
Quarter: 2025Q1

REPORT INFORMATION
  Report Type: Report from Study
  Country: KR (occurrence: KR)
  Receive Date: 20250224
  Receipt Date: 20250224
  Transmission Date: 20250409
  Serious: Yes (Other)
  Sender: PFIZER
  Company Number: KR-PFIZER INC-202500039341

PATIENT
  Age: 33 Year
  Sex: Female
  Weight: 57.9 kg

DRUGS (28)
  1. METHOTREXATE SODIUM [Suspect]
     Active Substance: METHOTREXATE SODIUM
     Indication: Immunosuppression
     Dosage: 25.5 ML, 1X/DAY
     Dates: start: 20210908, end: 20210918
  2. CALCIUM POLYCARBOPHIL [Concomitant]
     Active Substance: CALCIUM POLYCARBOPHIL
     Indication: Haemorrhoids thrombosed
     Dosage: 1250 MG, 1X/DAY
     Dates: start: 20210818
  3. ACETAMINOPHEN [Concomitant]
     Active Substance: ACETAMINOPHEN
     Indication: Proctalgia
     Dosage: 1300 MG, 1X/DAY
     Dates: start: 20210901, end: 20210905
  4. TRAMADOL HYDROCHLORIDE AND ACETAMINOPHEN [Concomitant]
     Active Substance: ACETAMINOPHEN\TRAMADOL HYDROCHLORIDE
     Indication: Proctalgia
     Dosage: 3 DF, 1X/DAY
     Dates: start: 20210830, end: 20210905
  5. SULFAMETHOXAZOLE\TRIMETHOPRIM [Concomitant]
     Active Substance: SULFAMETHOXAZOLE\TRIMETHOPRIM
     Indication: Infection prophylaxis
     Dosage: 2 DF, 1X/DAY
     Dates: start: 20210901, end: 20211007
  6. ACYCLOVIR [Concomitant]
     Active Substance: ACYCLOVIR
     Indication: Infection prophylaxis
     Dosage: 600 MG, 1X/DAY
     Dates: start: 20210901
  7. DEXAMETHASONE SODIUM PHOSPHATE [Concomitant]
     Active Substance: DEXAMETHASONE SODIUM PHOSPHATE
     Indication: Prophylaxis of nausea and vomiting
     Dosage: 12 MG, 1X/DAY
     Dates: start: 20210902, end: 20210906
  8. PALONOSETRON HYDROCHLORIDE [Concomitant]
     Active Substance: PALONOSETRON HYDROCHLORIDE
     Indication: Prophylaxis of nausea and vomiting
     Dosage: 0.25 MG, 1X/DAY
     Dates: start: 20210902, end: 20210902
  9. CYCLOPHOSPHAMIDE [Concomitant]
     Active Substance: CYCLOPHOSPHAMIDE
     Indication: Bone marrow conditioning regimen
     Dosage: 1500 MG, 1X/DAY
     Dates: start: 20210902, end: 20210905
  10. FLUDARABINE PHOSPHATE [Concomitant]
     Active Substance: FLUDARABINE PHOSPHATE
     Indication: Bone marrow conditioning regimen
     Dosage: 50 MG, 1X/DAY
     Dates: start: 20210902, end: 20210905
  11. MESNA [Concomitant]
     Active Substance: MESNA
     Indication: Urine alkalinisation therapy
     Dosage: 900 MG, 1X/DAY
     Dates: start: 20210902, end: 20210905
  12. ACETAZOLAMIDE [Concomitant]
     Active Substance: ACETAZOLAMIDE
     Indication: Urine alkalinisation therapy
     Dosage: 500 MG, 1X/DAY
     Dates: start: 20210902, end: 20210905
  13. LEVOFLOXACIN [Concomitant]
     Active Substance: LEVOFLOXACIN
     Indication: Infection prophylaxis
     Dosage: 500 MG, 1X/DAY
     Dates: start: 20210907, end: 20211007
  14. METRONIDAZOLE [Concomitant]
     Active Substance: METRONIDAZOLE
     Indication: Infection prophylaxis
     Dosage: 250 MG, 1X/DAY
     Dates: start: 20210902, end: 20210906
  15. CHLORPHENIRAMINE MALEATE [Concomitant]
     Active Substance: CHLORPHENIRAMINE MALEATE
     Indication: Bone marrow conditioning regimen
     Dosage: 4 G, 1X/DAY
     Dates: start: 20210901, end: 20210907
  16. CEFEPIME HYDROCHLORIDE [Concomitant]
     Active Substance: CEFEPIME HYDROCHLORIDE
     Indication: Pyrexia
     Dosage: 6 G, 1X/DAY
     Dates: start: 20210905, end: 20210924
  17. CYCLOSPORINE [Concomitant]
     Active Substance: CYCLOSPORINE
     Indication: Immunosuppression
     Dosage: 190 MG, 1X/DAY
     Dates: start: 20210906, end: 20210916
  18. CYCLOSPORINE [Concomitant]
     Active Substance: CYCLOSPORINE
     Dosage: 300 MG, 1X/DAY
     Dates: start: 20210917, end: 20210920
  19. CYCLOSPORINE [Concomitant]
     Active Substance: CYCLOSPORINE
     Dosage: 200 MG, 1X/DAY
     Dates: start: 20210921, end: 20210923
  20. ALPROSTADIL [Concomitant]
     Active Substance: ALPROSTADIL
     Indication: Prophylaxis
     Dosage: 63 MG, 1X/DAY
     Dates: start: 20210906, end: 20210918
  21. MAGNESIUM OXIDE [Concomitant]
     Active Substance: MAGNESIUM OXIDE
     Indication: Constipation
     Dosage: 1000 MG, 1X/DAY
     Dates: start: 20210820, end: 20210831
  22. LORAZEPAM [Concomitant]
     Active Substance: LORAZEPAM
     Indication: Nausea
     Dosage: 1 MG, 1X/DAY
     Dates: start: 20210905, end: 20211009
  23. OLANZAPINE [Concomitant]
     Active Substance: OLANZAPINE
     Indication: Nausea
     Dosage: 5 MG, 1X/DAY
     Dates: start: 20210905, end: 20210906
  24. METHYLPREDNISOLONE SODIUM SUCCINATE [Concomitant]
     Active Substance: METHYLPREDNISOLONE SODIUM SUCCINATE
     Indication: Prophylaxis
     Dosage: 125 MG, 1X/DAY
     Dates: start: 20210902, end: 20210905
  25. METOCLOPRAMIDE HYDROCHLORIDE [Concomitant]
     Active Substance: METOCLOPRAMIDE HYDROCHLORIDE
     Indication: Nausea
     Dosage: 10 MG, 1X/DAY
     Dates: start: 20210903, end: 20210928
  26. LEVOFLOXACIN [Concomitant]
     Active Substance: LEVOFLOXACIN
     Indication: Infection prophylaxis
     Dosage: 500 MG, 1X/DAY
  27. LEUCOVORIN CALCIUM [Concomitant]
     Active Substance: LEUCOVORIN CALCIUM
     Indication: Prophylaxis
     Dosage: 68 MG, 1X/DAY
     Dates: start: 20210908, end: 20210919
  28. FLAVONOIDES MYLAN [Concomitant]
     Indication: Haemorrhoids thrombosed
     Dosage: 2000 MG, 1X/DAY, PURIFIED AND MICRONIZED FLAVONOID FRACTION
     Dates: start: 20210818

REACTIONS (12)
  - Graft versus host disease [Unknown]
  - Neutrophil count decreased [Unknown]
  - Anaemia [Recovering/Resolving]
  - Diarrhoea [Recovered/Resolved]
  - Abdominal pain upper [Recovered/Resolved]
  - Neutrophil count decreased [Recovered/Resolved]
  - Epstein-Barr virus infection [Recovered/Resolved]
  - Rash papular [Recovering/Resolving]
  - Pyrexia [Recovered/Resolved]
  - Liver function test increased [Recovered/Resolved]
  - Insomnia [Recovering/Resolving]
  - Blood pressure increased [Recovered/Resolved]

NARRATIVE: CASE EVENT DATE: 20210909
